FAERS Safety Report 6467020-7 (Version None)
Quarter: 2009Q4

REPORT INFORMATION
  Report Type: 
  Country: None (occurrence: None)
  Receive Date: 20091127
  Receipt Date: 20091116
  Transmission Date: 20100525
  Serious: Yes (Hospitalization)
  Sender: FDA-Public Use
  Company Number: 2009AC000421

PATIENT
  Age: 52 Year
  Sex: Female

DRUGS (14)
  1. DIGOXIN [Suspect]
     Dosage: 0.25 MG;QD;PO
     Route: 048
  2. *NOVOLIN [Concomitant]
  3. PREDNISONE [Concomitant]
  4. COMBIVENT [Concomitant]
  5. DIOVAN [Concomitant]
  6. GLUCOTROL [Concomitant]
  7. FEOSOL [Concomitant]
  8. CIPRO [Concomitant]
  9. HUMULIN R [Concomitant]
  10. ASPIRIN [Concomitant]
  11. LOPRESSOR [Concomitant]
  12. LANTUS [Concomitant]
  13. LEVOTHYROXINE SODIUM [Concomitant]
  14. LORTAB [Concomitant]

REACTIONS (11)
  - DIABETES MELLITUS INADEQUATE CONTROL [None]
  - DIABETIC NEUROPATHY [None]
  - DIABETIC RETINOPATHY [None]
  - DIARRHOEA [None]
  - ECONOMIC PROBLEM [None]
  - HYPOTHYROIDISM [None]
  - INJURY [None]
  - NEPHROLITHIASIS [None]
  - RENAL FAILURE [None]
  - SURGERY [None]
  - UROSEPSIS [None]
